FAERS Safety Report 25602079 (Version 1)
Quarter: 2025Q3

REPORT INFORMATION
  Report Type: Spontaneous
  Country: US (occurrence: None)
  Receive Date: 20250723
  Receipt Date: 20250723
  Transmission Date: 20251020
  Serious: Yes (Other)
  Sender: FDA-CTU
  Company Number: None

PATIENT
  Age: 56 Year
  Sex: Female
  Weight: 69.03 kg

DRUGS (3)
  1. LYBALVI [Suspect]
     Active Substance: OLANZAPINE\SAMIDORPHAN L-MALATE
     Indication: Bipolar I disorder
     Dosage: FREQUENCY : DAILY;?
     Route: 048
     Dates: start: 20250708, end: 20250709
  2. Gabapentin 900 mg daily [Concomitant]
     Dates: start: 20160701
  3. Trazodone 200 mg daily at night [Concomitant]
     Dates: start: 20150701

REACTIONS (4)
  - Dizziness [None]
  - Asthenia [None]
  - Nausea [None]
  - Gait inability [None]

NARRATIVE: CASE EVENT DATE: 20250709
